FAERS Safety Report 18386321 (Version 1)
Quarter: 2020Q4

REPORT INFORMATION
  Report Type: Spontaneous
  Country: US (occurrence: US)
  Receive Date: 20201014
  Receipt Date: 20201014
  Transmission Date: 20210114
  Serious: No
  Sender: FDA-Public Use
  Company Number: None

PATIENT
  Age: 61 Year
  Sex: Female

DRUGS (2)
  1. ACITRETIN 25MG CAPS, 0.25 [Suspect]
     Active Substance: ACITRETIN
     Indication: SQUAMOUS CELL CARCINOMA OF SKIN
     Route: 048
     Dates: start: 201903
  2. ACITRETIN 25MG CAPS, 0.25 [Suspect]
     Active Substance: ACITRETIN
     Indication: PSORIASIS
     Route: 048
     Dates: start: 201903

REACTIONS (2)
  - Urinary tract infection [None]
  - Pneumonia [None]
